FAERS Safety Report 6106653-4 (Version None)
Quarter: 2009Q1

REPORT INFORMATION
  Report Type: 
  Country: None (occurrence: None)
  Receive Date: 20090304
  Receipt Date: 20090302
  Transmission Date: 20090719
  Serious: Yes (Death, Life-Threatening, Hospitalization)
  Sender: FDA-Public Use
  Company Number: GXKR2009DE02477

PATIENT
  Age: 71 Year
  Sex: Male

DRUGS (12)
  1. AMIODARONE HCL [Suspect]
     Indication: TACHYARRHYTHMIA
     Dosage: 200 MEQ/KG, QD, ORAL
     Route: 048
     Dates: start: 20070101, end: 20080531
  2. DIGITOXIN TAB [Suspect]
     Indication: TACHYARRHYTHMIA
     Dosage: 0.07 MG, QD, ORAL
     Route: 048
     Dates: start: 20070101, end: 20080531
  3. VIANI (FLUTICASONE PROPIONATE, SALMETEROL XINAFOATE) [Concomitant]
  4. TORSEMIDE [Concomitant]
  5. SPRIVA ^BOEHRINGER INGELHEIM^ (TIOTROPIUM BROMIDE) [Concomitant]
  6. PROTAPHANE MC (INSULIN INJECTION, ISOPHANE) [Concomitant]
  7. PANTOPRAZOLE SODIUM [Concomitant]
  8. FLUVASTATIN SODIUM [Concomitant]
  9. DIOVAN [Concomitant]
  10. DIAZEPAM [Concomitant]
  11. ALLOPURINOL [Concomitant]
  12. ACTRAPID PENFILL (INSULIN HUMAN) [Concomitant]

REACTIONS (1)
  - BRADYARRHYTHMIA [None]
